FAERS Safety Report 5595240-2 (Version None)
Quarter: 2008Q1

REPORT INFORMATION
  Report Type: 
  Country: None (occurrence: None)
  Receive Date: 20080117
  Receipt Date: 20080107
  Transmission Date: 20080703
  Serious: Yes (Hospitalization)
  Sender: FDA-Public Use
  Company Number: FR-PFIZER INC-2008002600

PATIENT
  Age: 79 Year
  Sex: Male

DRUGS (6)
  1. TAHOR [Suspect]
     Route: 048
  2. GLUCOPHAGE [Suspect]
     Route: 048
  3. AMARYL [Suspect]
     Route: 048
  4. RENITEC [Suspect]
     Route: 048
  5. PROSCAR [Suspect]
     Route: 048
  6. KARDEGIC [Suspect]
     Route: 048

REACTIONS (2)
  - CYTOLYTIC HEPATITIS [None]
  - HEPATITIS CHOLESTATIC [None]
